FAERS Safety Report 4704447-5 (Version None)
Quarter: 2005Q2

REPORT INFORMATION
  Report Type: 
  Country: None (occurrence: None)
  Receive Date: 20050628
  Receipt Date: 20050613
  Transmission Date: 20051028
  Serious: Yes (Other)
  Sender: FDA-Public Use
  Company Number: EWC050644494

PATIENT
  Age: 60 Year
  Sex: Female
  Weight: 59 kg

DRUGS (3)
  1. EVISTA [Suspect]
     Indication: OSTEOPOROSIS
     Dosage: 60 MG/1
     Dates: start: 20020901, end: 20050228
  2. CALCIUM CITRATE         WITH VITAMIN D [Concomitant]
  3. MELOXICAM [Concomitant]

REACTIONS (3)
  - ANAEMIA [None]
  - BONE DENSITY DECREASED [None]
  - MULTIPLE MYELOMA [None]
